FAERS Safety Report 9689099 (Version 2)
Quarter: 2014Q1

REPORT INFORMATION
  Report Type: Spontaneous
  Country: FR (occurrence: FR)
  Receive Date: 20131114
  Receipt Date: 20140224
  Transmission Date: 20141002
  Serious: Yes (Other)
  Sender: FDA-Public Use
  Company Number: PHHY2013FR130110

PATIENT
  Age: 77 Year
  Sex: Female

DRUGS (12)
  1. STALEVO [Suspect]
     Dosage: UNK UKN, UNK
     Route: 048
  2. MANTADIX [Suspect]
     Dosage: UNK UKN, UNK
     Route: 048
     Dates: start: 201309, end: 20131023
  3. DOMPERIDONE [Suspect]
     Dosage: UNK UKN, UNK
     Route: 048
  4. LISINOPRIL [Suspect]
     Dosage: UNK UKN, UNK
  5. MODOPAR [Suspect]
     Dosage: UNK UKN, UNK
     Route: 048
  6. NEUPRO [Suspect]
     Dosage: UNK UKN, UNK
     Route: 048
  7. SERECOR [Suspect]
     Dosage: UNK UKN, UNK
     Route: 048
  8. PLAVIX [Suspect]
     Dosage: UNK UKN, UNK
     Route: 048
  9. MOPRAL [Suspect]
     Dosage: UNK UKN, UNK
     Route: 048
  10. GAVISCON /GFR/ [Suspect]
     Dosage: UNK UKN, UNK
     Route: 048
  11. GUTRON [Suspect]
     Dosage: UNK UKN, UNK
  12. LEVOTHYROX [Suspect]
     Dosage: UNK UKN, UNK

REACTIONS (1)
  - Neutropenia [Unknown]
